FAERS Safety Report 5595651-5 (Version None)
Quarter: 2008Q1

REPORT INFORMATION
  Report Type: 
  Country: None (occurrence: None)
  Receive Date: 20080118
  Receipt Date: 20080107
  Transmission Date: 20080703
  Serious: Yes (Death)
  Sender: FDA-Public Use
  Company Number: US-WYE-H02060008

PATIENT
  Age: 82 Year
  Sex: Male

DRUGS (9)
  1. AMIODARONE [Suspect]
     Dosage: UNSPECIFIED
     Dates: start: 20060101
  2. CARVEDILOL [Suspect]
     Dosage: UNSPECIFIED
     Dates: start: 20060101
  3. POTASSIUM CHLORIDE [Suspect]
     Dosage: UNSPECIFIED
     Dates: start: 20060101
  4. FLUOXETINE [Suspect]
     Dosage: UNSPECIFIED
     Dates: start: 20060101
  5. FUROSEMIDE [Suspect]
     Dosage: UNSPECIFIED
     Dates: start: 20060101
  6. RAMIPRIL [Suspect]
     Dosage: UNSPECIFIED
     Dates: start: 20060101
  7. WARFARIN SODIUM [Suspect]
     Dosage: UNSPECIFIED
     Dates: start: 20060101
  8. DIGOXIN [Suspect]
     Dosage: UNSPECIFIED
     Dates: start: 20060101
  9. FERROUS SULFATE [Suspect]
     Dosage: UNSPECIFIED
     Dates: start: 20060101

REACTIONS (1)
  - OVERDOSE [None]
